FAERS Safety Report 6775386-3 (Version None)
Quarter: 2010Q2

REPORT INFORMATION
  Report Type: 
  Country: None (occurrence: None)
  Receive Date: 20100617
  Receipt Date: 20100608
  Transmission Date: 20101027
  Serious: Yes (Other)
  Sender: FDA-Public Use
  Company Number: GB-PFIZER INC-2010071494

PATIENT
  Age: 71 Year
  Sex: Female

DRUGS (2)
  1. LIPITOR [Suspect]
     Dosage: 40 MG, UNK
  2. CORTISONE [Concomitant]
     Dosage: UNK

REACTIONS (1)
  - BACK PAIN [None]
